FAERS Safety Report 14415908 (Version 2)
Quarter: 2018Q1

REPORT INFORMATION
  Report Type: Report from Study
  Country: JP (occurrence: JP)
  Receive Date: 20180122
  Receipt Date: 20180312
  Transmission Date: 20180509
  Serious: Yes (Disabling, Other)
  Sender: FDA-Public Use
  Company Number: JP-ROCHE-1872933

PATIENT
  Age: 85 Year
  Sex: Male

DRUGS (13)
  1. LUCENTIS [Suspect]
     Active Substance: RANIBIZUMAB
     Indication: RETINAL VEIN OCCLUSION
     Route: 031
     Dates: start: 20151208, end: 20151208
  2. BRONUCK [Concomitant]
     Active Substance: BROMFENAC SODIUM
     Indication: MACULAR OEDEMA
     Route: 047
  3. TARIVID [Concomitant]
     Active Substance: OFLOXACIN
     Indication: ANTIBIOTIC PROPHYLAXIS
     Route: 047
     Dates: start: 20151208, end: 20160223
  4. CRAVIT [Concomitant]
     Active Substance: LEVOFLOXACIN
     Indication: ANTIBIOTIC PROPHYLAXIS
     Route: 047
     Dates: start: 20151208
  5. RIPASUDIL [Concomitant]
     Indication: GLAUCOMA
     Route: 065
  6. GATIFLO [Concomitant]
     Active Substance: GATIFLOXACIN
     Indication: ANTIBIOTIC PROPHYLAXIS
     Route: 047
     Dates: start: 20160223
  7. TARIVID [Concomitant]
     Active Substance: OFLOXACIN
     Route: 047
  8. RIPASUDIL [Concomitant]
     Indication: INTRAOCULAR PRESSURE INCREASED
     Dosage: 2 DRP, UNK
     Route: 047
     Dates: start: 20160705
  9. XALACOM [Concomitant]
     Active Substance: LATANOPROST\TIMOLOL MALEATE
     Indication: GLAUCOMA
     Dosage: 1 DRP, UNK
     Route: 047
  10. PATANOL [Concomitant]
     Active Substance: OLOPATADINE HYDROCHLORIDE
     Indication: CONJUNCTIVITIS ALLERGIC
     Route: 047
     Dates: start: 20161110
  11. LUCENTIS [Suspect]
     Active Substance: RANIBIZUMAB
     Indication: MACULAR OEDEMA
     Route: 031
     Dates: start: 20160223
  12. EYLEA [Concomitant]
     Active Substance: AFLIBERCEPT
     Indication: RETINAL VEIN OCCLUSION
     Route: 031
  13. ALPHAGAN P [Concomitant]
     Active Substance: BRIMONIDINE TARTRATE
     Indication: GLAUCOMA
     Dosage: 2 DROP
     Route: 047

REACTIONS (5)
  - Intraocular pressure increased [Not Recovered/Not Resolved]
  - Glaucoma [Recovered/Resolved with Sequelae]
  - Macular oedema [Unknown]
  - Blindness unilateral [Unknown]
  - Visual acuity reduced [Unknown]

NARRATIVE: CASE EVENT DATE: 20151209
